FAERS Safety Report 10713256 (Version 1)
Quarter: 2015Q1

REPORT INFORMATION
  Report Type: Spontaneous
  Country: IT (occurrence: IT)
  Receive Date: 20150115
  Receipt Date: 20150115
  Transmission Date: 20150721
  Serious: Yes (Hospitalization)
  Sender: FDA-Public Use
  Company Number: IT-TEVA-534048ISR

PATIENT
  Age: 83 Year
  Sex: Male

DRUGS (5)
  1. TRIATEC - 5 MG COMPRESSE [Concomitant]
     Active Substance: RAMIPRIL
     Indication: PRODUCT USED FOR UNKNOWN INDICATION
     Route: 048
  2. NORVASC - 5 MG COMPRESSE [Concomitant]
     Indication: PRODUCT USED FOR UNKNOWN INDICATION
     Route: 048
  3. TOTALIP 20 - COMPRESSE 20 MG [Concomitant]
     Indication: PRODUCT USED FOR UNKNOWN INDICATION
     Route: 048
  4. ALPRAZOLAM. [Suspect]
     Active Substance: ALPRAZOLAM
     Indication: SUICIDE ATTEMPT
     Dosage: 20 ML TOTALM, SOLUTION
     Route: 048
     Dates: start: 20141210, end: 20141210
  5. SINTROM [Suspect]
     Active Substance: ACENOCOUMAROL
     Indication: SUICIDE ATTEMPT
     Dosage: 5 DF TOTAL
     Route: 048
     Dates: start: 20141210, end: 20141210

REACTIONS (5)
  - Sopor [Unknown]
  - Drug abuse [Unknown]
  - Suicide attempt [Unknown]
  - Drop attacks [Unknown]
  - Head injury [Unknown]

NARRATIVE: CASE EVENT DATE: 20141210
